FAERS Safety Report 5102076-5 (Version None)
Quarter: 2006Q3

REPORT INFORMATION
  Report Type: 
  Country: None (occurrence: None)
  Receive Date: 20060908
  Receipt Date: 20060710
  Transmission Date: 20061208
  Serious: Yes (Hospitalization, Other)
  Sender: FDA-Public Use
  Company Number: US200604002936

PATIENT
  Sex: Female
  Weight: 109.3 kg

DRUGS (8)
  1. ZYPREXA [Suspect]
     Indication: DRUG USE FOR UNKNOWN INDICATION
     Dosage: 10 MG; SEE IMAGE
     Dates: start: 20000201, end: 20000401
  2. ZYPREXA [Suspect]
     Indication: DRUG USE FOR UNKNOWN INDICATION
     Dosage: 10 MG; SEE IMAGE
     Dates: start: 20000101, end: 20010601
  3. ZYPREXA [Suspect]
     Indication: DRUG USE FOR UNKNOWN INDICATION
     Dosage: 10 MG; SEE IMAGE
     Dates: start: 20010701, end: 20020201
  4. ZYPREXA [Suspect]
     Indication: DRUG USE FOR UNKNOWN INDICATION
     Dosage: 10 MG; SEE IMAGE
     Dates: start: 20020301, end: 20021101
  5. ZYPREXA [Suspect]
     Indication: DRUG USE FOR UNKNOWN INDICATION
     Dosage: 10 MG; SEE IMAGE
     Dates: start: 20040101, end: 20040501
  6. ABILIGY /USA/ (ARIPIPRAZOLE) [Concomitant]
  7. CELEXA [Concomitant]
  8. CRIXIVAN /SWE/(INDINAVIR SULFATE) [Concomitant]

REACTIONS (10)
  - BLINDNESS [None]
  - BLOOD CHOLESTEROL ABNORMAL [None]
  - BLOOD TRIGLYCERIDES INCREASED [None]
  - DIABETES MELLITUS [None]
  - DIABETIC COMA [None]
  - GLAUCOMA [None]
  - HYPOGLYCAEMIA [None]
  - OBESITY [None]
  - PANCREATITIS [None]
  - VISION BLURRED [None]
